FAERS Safety Report 15058096 (Version 1)
Quarter: 2018Q2

REPORT INFORMATION
  Report Type: Spontaneous
  Country: US (occurrence: US)
  Receive Date: 20180625
  Receipt Date: 20180625
  Transmission Date: 20180711
  Serious: No
  Sender: FDA-Public Use
  Company Number: US-PFIZER INC-2018255097

PATIENT
  Sex: Male

DRUGS (2)
  1. GABAPENTIN. [Suspect]
     Active Substance: GABAPENTIN
     Indication: NERVE COMPRESSION
     Dosage: 1200 MG, 3X/DAY (TWO 600 MG TABLETS THREE TIMES A DAY)
     Dates: start: 2016, end: 201803
  2. GABAPENTIN. [Suspect]
     Active Substance: GABAPENTIN
     Indication: NERVE COMPRESSION
     Dosage: 1200 MG, 3X/DAY (TWO 600 MG TABLETS THREE TIMES A DAY)
     Dates: start: 2016, end: 201803

REACTIONS (1)
  - Drug ineffective for unapproved indication [Unknown]
